FAERS Safety Report 10663068 (Version 3)
Quarter: 2015Q1

REPORT INFORMATION
  Report Type: Spontaneous
  Country: US (occurrence: US)
  Receive Date: 20141218
  Receipt Date: 20150303
  Transmission Date: 20150720
  Serious: Yes (Hospitalization, Other)
  Sender: FDA-Public Use
  Company Number: US-GLAXOSMITHKLINE-A1089362A

PATIENT

DRUGS (1)
  1. COREG CR [Suspect]
     Active Substance: CARVEDILOL PHOSPHATE
     Indication: CEREBROVASCULAR ACCIDENT
     Route: 065
     Dates: start: 20140528

REACTIONS (2)
  - Therapy cessation [Unknown]
  - Cerebrovascular accident [Unknown]
